FAERS Safety Report 7269306-5 (Version None)
Quarter: 2011Q1

REPORT INFORMATION
  Report Type: 
  Country: None (occurrence: None)
  Receive Date: 20110202
  Receipt Date: 20110118
  Transmission Date: 20110831
  Serious: Yes (Death, Other)
  Sender: FDA-Public Use
  Company Number: JP-CELGENEUS-087-21880-10112258

PATIENT
  Sex: Female

DRUGS (5)
  1. REVLIMID [Suspect]
     Indication: MULTIPLE MYELOMA
     Route: 048
     Dates: start: 20100823, end: 20100905
  2. VANCOMIN [Concomitant]
     Route: 048
     Dates: start: 20100329, end: 20100905
  3. BUFFERIN A [Concomitant]
     Indication: PROPHYLAXIS
     Route: 048
     Dates: start: 20100823, end: 20100905
  4. DEXAMETHASONE [Concomitant]
     Indication: MULTIPLE MYELOMA
     Route: 048
     Dates: start: 20100823, end: 20100826
  5. SLOW-K [Concomitant]
     Route: 048
     Dates: start: 20100726, end: 20100905

REACTIONS (5)
  - PLATELET COUNT DECREASED [None]
  - MULTIPLE MYELOMA [None]
  - BLOOD BILIRUBIN INCREASED [None]
  - LIVER DISORDER [None]
  - C-REACTIVE PROTEIN INCREASED [None]
